FAERS Safety Report 15165683 (Version 1)
Quarter: 2018Q3

REPORT INFORMATION
  Report Type: Other
  Country: JP (occurrence: JP)
  Receive Date: 20180719
  Receipt Date: 20180719
  Transmission Date: 20181010
  Serious: Yes (Death, Hospitalization)
  Sender: FDA-Public Use
  Company Number: JP-ACTELION-A-CH2018-175523

PATIENT
  Age: 33 Month
  Sex: Female

DRUGS (4)
  1. NITRIC OXIDE. [Concomitant]
     Active Substance: NITRIC OXIDE
  2. BOSENTAN. [Suspect]
     Active Substance: BOSENTAN
     Indication: PERSISTENT FOETAL CIRCULATION
     Route: 048
  3. BERAPROST [Concomitant]
     Active Substance: BERAPROST
  4. SILDENAFIL. [Concomitant]
     Active Substance: SILDENAFIL

REACTIONS (2)
  - Death [Fatal]
  - Pulmonary hypertension [Unknown]
